FAERS Safety Report 9257956 (Version 1)
Quarter: 2013Q1

REPORT INFORMATION
  Report Type: Spontaneous
  Country: US (occurrence: None)
  Receive Date: 20121212
  Receipt Date: 20121212
  Transmission Date: 20140127
  Serious: No
  Sender: FDA-Public Use
  Company Number: 1208USA001653

PATIENT
  Age: 62 Year
  Sex: Male

DRUGS (5)
  1. VICTRELIS [Suspect]
     Indication: HEPATITIS C
     Route: 048
     Dates: start: 20120801
  2. PEGASYS (PEGINTERFERON ALFA-2A) [Concomitant]
  3. RIBASPHERE (RIBAVIRIN) [Concomitant]
  4. NEXIUM (ESOMEPRAZOLE MAGNESIUM) [Concomitant]
  5. TRAMADOL HYDROCHLORIDE (TRAMADOL HYDROCHLORIDE) [Concomitant]

REACTIONS (6)
  - Chest pain [None]
  - Decreased interest [None]
  - Dizziness postural [None]
  - Arthralgia [None]
  - Decreased appetite [None]
  - Constipation [None]
